FAERS Safety Report 5816345-4 (Version None)
Quarter: 2008Q3

REPORT INFORMATION
  Report Type: 
  Country: None (occurrence: None)
  Receive Date: 20080716
  Receipt Date: 20080506
  Transmission Date: 20090109
  Serious: Yes (Other)
  Sender: FDA-Public Use
  Company Number: 2008US001132

PATIENT
  Age: 72 Year
  Sex: Female
  Weight: 60.8 kg

DRUGS (7)
  1. ADENOSCAN [Suspect]
     Indication: SCAN MYOCARDIAL PERFUSION
     Dosage: PARENTERAL
     Route: 051
  2. DIOVAN [Concomitant]
  3. ZOLOFT [Concomitant]
  4. ZETIA [Concomitant]
  5. TRICOR [Concomitant]
  6. ALLEGRA [Concomitant]
  7. ACTONEL [Concomitant]

REACTIONS (1)
  - HYPOTENSION [None]
